FAERS Safety Report 4808078-8 (Version None)
Quarter: 2005Q4

REPORT INFORMATION
  Report Type: 
  Country: None (occurrence: None)
  Receive Date: 20051020
  Receipt Date: 20051011
  Transmission Date: 20060501
  Serious: Yes (Other)
  Sender: FDA-Public Use
  Company Number: 2005141899

PATIENT
  Age: 88 Year
  Sex: Female

DRUGS (3)
  1. AMLODIPINE [Suspect]
     Indication: ESSENTIAL HYPERTENSION
     Dosage: 5 MG ( 5MH, 1 IN 1 D), ORAL
     Route: 048
  2. NATRILIX (INDAPAMIDE) [Concomitant]
  3. SOTALOL HCL [Concomitant]

REACTIONS (2)
  - ALOPECIA [None]
  - ARTHRITIS [None]
